FAERS Safety Report 7151610-2 (Version None)
Quarter: 2010Q4

REPORT INFORMATION
  Report Type: 
  Country: None (occurrence: None)
  Receive Date: 20101210
  Receipt Date: 20101201
  Transmission Date: 20110411
  Serious: Yes (Other)
  Sender: FDA-Public Use
  Company Number: PL-JNJFOC-20101201894

PATIENT
  Age: 50 Year
  Sex: Female
  Weight: 86 kg

DRUGS (5)
  1. STELARA [Suspect]
     Indication: PSORIASIS
     Route: 058
  2. PRESTARIUM [Concomitant]
     Indication: ILL-DEFINED DISORDER
  3. KALDYUM [Concomitant]
     Indication: ILL-DEFINED DISORDER
  4. SIOFOR [Concomitant]
     Indication: ILL-DEFINED DISORDER
  5. BIOTIN [Concomitant]
     Indication: ILL-DEFINED DISORDER

REACTIONS (1)
  - HEPATITIS TOXIC [None]
